FAERS Safety Report 6297007-9 (Version None)
Quarter: 2009Q3

REPORT INFORMATION
  Report Type: 
  Country: None (occurrence: None)
  Receive Date: 20090804
  Receipt Date: 20090724
  Transmission Date: 20100115
  Serious: Yes (Hospitalization)
  Sender: FDA-Public Use
  Company Number: DE-ABBOTT-09P-062-0587082-00

PATIENT
  Sex: Male
  Weight: 63 kg

DRUGS (4)
  1. KALETRA [Suspect]
     Indication: HIV INFECTION
     Dosage: 2X2 PER DAY
     Route: 048
     Dates: start: 20061215
  2. NOVAMINSULFON [Concomitant]
     Indication: TUBULOINTERSTITIAL NEPHRITIS
     Dates: start: 20090519, end: 20090716
  3. OMEPRAZOL [Concomitant]
     Indication: ABDOMINAL DISCOMFORT
     Route: 048
     Dates: start: 20080313
  4. OMEPRAZOL 20 [Concomitant]
     Indication: DRUG USE FOR UNKNOWN INDICATION

REACTIONS (4)
  - DIARRHOEA [None]
  - FLANK PAIN [None]
  - LABORATORY TEST ABNORMAL [None]
  - VOMITING [None]
